FAERS Safety Report 9242860 (Version 2)
Quarter: 2013Q2

REPORT INFORMATION
  Report Type: Spontaneous
  Country: US (occurrence: US)
  Receive Date: 20130419
  Receipt Date: 20130514
  Transmission Date: 20140414
  Serious: Yes (Other)
  Sender: FDA-Public Use
  Company Number: US-009507513-1304USA007035

PATIENT
  Age: 47 Year
  Sex: Male

DRUGS (4)
  1. TEMODAR [Suspect]
     Indication: METASTATIC MALIGNANT MELANOMA
     Dosage: 170 MG, QD
     Route: 048
  2. RECOMBINANT HUMAN INTERLEUKIN-2 (125ALA) [Suspect]
     Indication: METASTATIC MALIGNANT MELANOMA
     Dosage: 5 CYCLES HIGH DOSE INFUSION
  3. LANSOPRAZOLE [Concomitant]
  4. METOPROLOL [Concomitant]

REACTIONS (1)
  - Drug-induced liver injury [Recovered/Resolved]
